FAERS Safety Report 8193029-1 (Version None)
Quarter: 2012Q1

REPORT INFORMATION
  Report Type: 
  Country: None (occurrence: None)
  Receive Date: 20120308
  Receipt Date: 20120228
  Transmission Date: 20120608
  Serious: Yes (Death, Hospitalization)
  Sender: FDA-Public Use
  Company Number: JP-AMGEN-JPNCT2011027710

PATIENT
  Age: 69 Year
  Sex: Male
  Weight: 64 kg

DRUGS (11)
  1. LEVOLEUCOVORIN CALCIUM [Concomitant]
     Dosage: 325 MG, Q2WK
     Route: 041
     Dates: start: 20110125, end: 20110314
  2. OXALIPLATIN [Concomitant]
     Indication: COLORECTAL CANCER
     Dosage: 140 MG, UNK
     Route: 041
     Dates: start: 20100921, end: 20110124
  3. FLUOROURACIL [Concomitant]
     Dosage: 650 MG, Q2WK
     Route: 040
     Dates: start: 20110125, end: 20110314
  4. DECADRON [Concomitant]
     Dosage: UNK
     Route: 042
  5. FLUOROURACIL [Concomitant]
     Dosage: 4000 MG, Q2WK
     Route: 041
     Dates: start: 20110125, end: 20110314
  6. LEVOLEUCOVORIN CALCIUM [Concomitant]
     Indication: COLORECTAL CANCER
     Dosage: 325 MG, Q2WK
     Route: 041
     Dates: start: 20100921, end: 20110124
  7. FLUOROURACIL [Concomitant]
     Dosage: 4000 MG, Q2WK
     Route: 041
     Dates: start: 20100921, end: 20110124
  8. PANITUMUMAB [Suspect]
     Indication: COLORECTAL CANCER
     Dosage: 6 MG/KG, Q2WK
     Route: 041
     Dates: start: 20100921, end: 20110314
  9. FLUOROURACIL [Concomitant]
     Indication: COLORECTAL CANCER
     Dosage: 600 MG, Q2WK
     Route: 040
     Dates: start: 20100921, end: 20110124
  10. KYTRIL [Concomitant]
     Dosage: UNK
     Route: 042
  11. IRINOTECAN HCL [Concomitant]
     Indication: COLORECTAL CANCER
     Dosage: 250 MG, Q2WK
     Route: 041
     Dates: start: 20110125, end: 20110314

REACTIONS (4)
  - INTERSTITIAL LUNG DISEASE [None]
  - DERMATITIS ACNEIFORM [None]
  - HYPOKALAEMIA [None]
  - PLATELET COUNT DECREASED [None]
